FAERS Safety Report 11889537 (Version 3)
Quarter: 2016Q1

REPORT INFORMATION
  Report Type: Spontaneous
  Country: US (occurrence: US)
  Receive Date: 20160105
  Receipt Date: 20160229
  Transmission Date: 20160526
  Serious: Yes (Hospitalization)
  Sender: FDA-Public Use
  Company Number: US-VERTEX PHARMACEUTICALS-2016-000001

PATIENT
  Age: 15 Year
  Sex: Male

DRUGS (2)
  1. ORKAMBI [Suspect]
     Active Substance: IVACAFTOR\LUMACAFTOR
     Dosage: UNK
     Route: 048
     Dates: start: 20160121
  2. ORKAMBI [Suspect]
     Active Substance: IVACAFTOR\LUMACAFTOR
     Indication: CYSTIC FIBROSIS
     Dosage: 400/250 MG, BID
     Route: 048
     Dates: start: 20151027

REACTIONS (4)
  - Cystic fibrosis [Recovering/Resolving]
  - Decreased appetite [Recovering/Resolving]
  - Fatigue [Recovering/Resolving]
  - Cystic fibrosis respiratory infection suppression [Recovering/Resolving]

NARRATIVE: CASE EVENT DATE: 20151229
